FAERS Safety Report 15729435 (Version 1)
Quarter: 2018Q4

REPORT INFORMATION
  Report Type: Spontaneous
  Country: RO (occurrence: RO)
  Receive Date: 20181217
  Receipt Date: 20181217
  Transmission Date: 20190205
  Serious: Yes (Other)
  Sender: FDA-Public Use
  Company Number: RO-PFIZER INC-2018515655

PATIENT
  Age: 77 Year
  Sex: Female
  Weight: 47 kg

DRUGS (11)
  1. SORTIS [Concomitant]
     Active Substance: ATORVASTATIN
     Dosage: UNK UNK, 1X/DAY(EVENING)
  2. VITAMIN C [Concomitant]
     Active Substance: ASCORBIC ACID
     Dosage: UNK, 1X/DAY(NOON)
  3. FOSAVANCE [Concomitant]
     Active Substance: ALENDRONATE SODIUM\CHOLECALCIFEROL
     Dosage: 1 TABLET/DAY, WEEKLY
  4. SUTENT [Suspect]
     Active Substance: SUNITINIB MALATE
     Indication: METASTATIC RENAL CELL CARCINOMA
     Dosage: UNK
  5. SUTENT [Suspect]
     Active Substance: SUNITINIB MALATE
     Dosage: 37.5 MG, CYCLIC, 2 WEEKS OF TREATMENT WITH ONE WEEK OF PAUSE
     Dates: start: 20181126
  6. NORVASC [Concomitant]
     Active Substance: AMLODIPINE BESYLATE
     Dosage: 5 MG, 2X/DAY(MORNING AND EVENING)
  7. PRESTARIUM [PERINDOPRIL] [Concomitant]
     Dosage: 5 MG, 1X/DAY(EVENING)
  8. VITAMIN E NATURAL [TOCOPHEROL] [Concomitant]
  9. CIPRINOL [CIPROFLOXACIN HYDROCHLORIDE] [Concomitant]
     Indication: CHOLECYSTITIS ACUTE
     Dosage: 500 MG, 2X/DAY, 1 TABLET AT EVERY 12 HOURS FOR 7 DAYS (07DEC2018-13DEC2018)
     Route: 048
  10. EGILOC [Concomitant]
     Dosage: 50 UNK, 1X/DAY(MORNING), SOMETIMES PAUSED
  11. ZINC. [Concomitant]
     Active Substance: ZINC

REACTIONS (6)
  - Eye haemorrhage [Unknown]
  - Gastrointestinal disorder [Unknown]
  - Epistaxis [Unknown]
  - Hypertension [Unknown]
  - Fatigue [Not Recovered/Not Resolved]
  - Myasthenia gravis [Unknown]

NARRATIVE: CASE EVENT DATE: 201812
